FAERS Safety Report 25886090 (Version 1)
Quarter: 2025Q4

REPORT INFORMATION
  Report Type: Spontaneous
  Country: EU (occurrence: EU)
  Receive Date: 20251006
  Receipt Date: 20251006
  Transmission Date: 20260118
  Serious: Yes (Other)
  Sender: AMGEN
  Company Number: EU-SANDOZ-SDZ2025DE069214

PATIENT
  Age: 41 Year
  Sex: Female

DRUGS (3)
  1. DENOSUMAB [Suspect]
     Active Substance: DENOSUMAB
     Indication: Chemotherapy
     Dosage: UNK
     Route: 065
     Dates: start: 202102, end: 202105
  2. EPIRUBICIN [Suspect]
     Active Substance: EPIRUBICIN
     Indication: Palliative care
     Dosage: UNK 30 MG/METER SQUARE KOF
     Route: 065
     Dates: start: 202102, end: 202105
  3. EPIRUBICIN [Suspect]
     Active Substance: EPIRUBICIN
     Indication: Breast cancer

REACTIONS (2)
  - Breast cancer [Unknown]
  - Drug intolerance [Unknown]
